FAERS Safety Report 6077676-9 (Version None)
Quarter: 2009Q1

REPORT INFORMATION
  Report Type: 
  Country: None (occurrence: None)
  Receive Date: 20090213
  Receipt Date: 20020221
  Transmission Date: 20090719
  Serious: Yes (Hospitalization)
  Sender: FDA-Public Use
  Company Number: IT-ROCHE-613218

PATIENT
  Sex: Female

DRUGS (3)
  1. PEG-INTERFERON ALFA 2A (RO 25-8310) [Suspect]
     Dosage: DOSE: 135 (UNITS NOT REPORTED)
     Route: 058
     Dates: start: 20010502, end: 20020210
  2. RIBAVIRIN [Suspect]
     Route: 065
     Dates: start: 20010502, end: 20020207
  3. PREFOLIC [Concomitant]
     Route: 048
     Dates: start: 20010502, end: 20020228

REACTIONS (1)
  - LYMPHADENOPATHY [None]
